FAERS Safety Report 10863196 (Version 3)
Quarter: 2017Q2

REPORT INFORMATION
  Report Type: Spontaneous
  Country: US (occurrence: US)
  Receive Date: 20150223
  Receipt Date: 20170424
  Transmission Date: 20170829
  Serious: No
  Sender: FDA-Public Use
  Company Number: US-ASTRAZENECA-2015SE14175

PATIENT
  Age: 75 Year
  Sex: Male

DRUGS (25)
  1. VALIUM [Concomitant]
     Active Substance: DIAZEPAM
  2. LEVAQUIN [Concomitant]
     Active Substance: LEVOFLOXACIN
  3. METROGEL [Concomitant]
     Active Substance: METRONIDAZOLE
     Dosage: 1% GEL , APPLIED ONCE DAILY
     Route: 061
     Dates: start: 20160412
  4. CRESTOR [Suspect]
     Active Substance: ROSUVASTATIN CALCIUM
     Route: 048
  5. COREG [Concomitant]
     Active Substance: CARVEDILOL
     Route: 048
     Dates: start: 20120302
  6. PREDNISONE. [Concomitant]
     Active Substance: PREDNISONE
     Dosage: 10 MG
     Route: 048
     Dates: start: 20170109
  7. TYLENOL [Concomitant]
     Active Substance: ACETAMINOPHEN
  8. LOTREL [Concomitant]
     Active Substance: AMLODIPINE BESYLATE\BENAZEPRIL HYDROCHLORIDE
  9. NIASPAN [Concomitant]
     Active Substance: NIACIN
  10. VITAMIN D [Concomitant]
     Active Substance: CHOLECALCIFEROL
     Route: 048
     Dates: start: 20150216
  11. BETAMETHASONE DIPROPIONATE. [Concomitant]
     Active Substance: BETAMETHASONE DIPROPIONATE
     Dosage: 0.05% CREAM, 1 APP APPLIED TOPICALLY TWO TIMES A DAY
     Dates: start: 20160412
  12. RAMIPRIL. [Suspect]
     Active Substance: RAMIPRIL
     Route: 048
  13. CODEINE PHOSPHATE [Concomitant]
     Active Substance: CODEINE PHOSPHATE
  14. AMLODIPINE [Concomitant]
     Active Substance: AMLODIPINE BESYLATE
  15. MOBIC [Concomitant]
     Active Substance: MELOXICAM
  16. METOPROLOL TARTRATE. [Suspect]
     Active Substance: METOPROLOL TARTRATE
     Route: 065
  17. OXYCODONE HYDROCHLORIDE. [Concomitant]
     Active Substance: OXYCODONE HYDROCHLORIDE
  18. ZETIA [Concomitant]
     Active Substance: EZETIMIBE
     Route: 048
  19. NITROSTAT [Concomitant]
     Active Substance: NITROGLYCERIN
     Dosage: 1 TABLET, EVERY 5 MINUTES
     Route: 060
     Dates: start: 20100106
  20. CELEBREX [Concomitant]
     Active Substance: CELECOXIB
     Route: 048
  21. METOPROLOL SUCCINATE. [Suspect]
     Active Substance: METOPROLOL SUCCINATE
     Indication: PRODUCT USED FOR UNKNOWN INDICATION
     Route: 048
  22. BENAZEPRIL [Concomitant]
     Active Substance: BENAZEPRIL HYDROCHLORIDE
  23. ASPIRIN. [Concomitant]
     Active Substance: ASPIRIN
     Dosage: ENTERIC COATED TABLET
     Route: 048
  24. PERCOCET [Concomitant]
     Active Substance: ACETAMINOPHEN\OXYCODONE HYDROCHLORIDE
     Dosage: 5/325
  25. CEFDINIR. [Concomitant]
     Active Substance: CEFDINIR
     Route: 048
     Dates: start: 20170109

REACTIONS (4)
  - Drug hypersensitivity [Unknown]
  - Burning sensation [Unknown]
  - Vomiting [Unknown]
  - Diarrhoea [Unknown]
